FAERS Safety Report 6604796-X (Version None)
Quarter: 2010Q1

REPORT INFORMATION
  Report Type: 
  Country: None (occurrence: None)
  Receive Date: 20100226
  Receipt Date: 20100216
  Transmission Date: 20100710
  Serious: Yes (Hospitalization, Other)
  Sender: FDA-Public Use
  Company Number: SE-PFIZER INC-2008076599

PATIENT
  Age: 54 Year
  Sex: Female

DRUGS (5)
  1. PREDNISOLONE [Suspect]
     Indication: POLYMYALGIA RHEUMATICA
     Dosage: EVERY DAY
     Route: 048
     Dates: start: 20080307, end: 20091020
  2. PREDNISOLONE [Suspect]
     Dosage: EVERY DAY
     Route: 048
  3. WARFARIN [Suspect]
     Indication: THROMBOSIS
     Dates: start: 20080301, end: 20080801
  4. OMEPRAZOLE [Suspect]
     Indication: DUODENAL ULCER
     Dates: start: 20080301, end: 20080101
  5. METOPROLOL TARTRATE [Concomitant]
     Dates: start: 20080301

REACTIONS (18)
  - BURNING SENSATION [None]
  - CANDIDIASIS [None]
  - CATARACT [None]
  - CUSHING'S SYNDROME [None]
  - CUTANEOUS LUPUS ERYTHEMATOSUS [None]
  - DIARRHOEA [None]
  - ELECTROCARDIOGRAM ABNORMAL [None]
  - EUPHORIC MOOD [None]
  - HYPERTENSION [None]
  - INSOMNIA [None]
  - MUSCULAR WEAKNESS [None]
  - NAUSEA [None]
  - OSTEOPOROSIS [None]
  - PARAESTHESIA [None]
  - PSYCHOTIC DISORDER [None]
  - PULMONARY EMBOLISM [None]
  - RED BLOOD CELL SEDIMENTATION RATE INCREASED [None]
  - STRESS [None]
